FAERS Safety Report 18378984 (Version 2)
Quarter: 2020Q4

REPORT INFORMATION
  Report Type: Report from Study
  Country: US (occurrence: US)
  Receive Date: 20201014
  Receipt Date: 20201016
  Transmission Date: 20210114
  Serious: Yes (Other)
  Sender: FDA-Public Use
  Company Number: US-BIOGEN-2020BI00933759

PATIENT
  Age: 48 Year
  Sex: Female

DRUGS (3)
  1. TYSABRI [Suspect]
     Active Substance: NATALIZUMAB
     Indication: MULTIPLE SCLEROSIS
     Dosage: INFUSED FOR OVER 1 HOUR
     Route: 042
     Dates: start: 20170928
  2. SOLU-MEDROL [Suspect]
     Active Substance: METHYLPREDNISOLONE SODIUM SUCCINATE
     Indication: URTICARIA
     Route: 065
  3. TYSABRI [Suspect]
     Active Substance: NATALIZUMAB
     Route: 065
     Dates: start: 20170928

REACTIONS (8)
  - Urticaria [Unknown]
  - Laryngitis [Not Recovered/Not Resolved]
  - Hypokalaemia [Unknown]
  - Throat tightness [Unknown]
  - Pruritus [Unknown]
  - Lyme disease [Unknown]
  - Angioedema [Unknown]
  - Swelling [Unknown]

NARRATIVE: CASE EVENT DATE: 20201001
